FAERS Safety Report 6889687-1 (Version None)
Quarter: 2010Q3

REPORT INFORMATION
  Report Type: 
  Country: None (occurrence: None)
  Receive Date: 20100730
  Receipt Date: 20080627
  Transmission Date: 20110219
  Serious: Yes (Other)
  Sender: FDA-Public Use
  Company Number: US-PFIZER INC-2008031765

PATIENT
  Sex: Female
  Weight: 68 kg

DRUGS (11)
  1. LIPITOR [Suspect]
     Indication: BLOOD CHOLESTEROL INCREASED
     Dosage: DAILY
     Dates: start: 20060101
  2. LIPITOR [Suspect]
     Dosage: DAILY
     Dates: end: 20080201
  3. NEORAL [Concomitant]
  4. IMURAN [Concomitant]
  5. NORVASC [Concomitant]
  6. PREDNISONE [Concomitant]
  7. ZEMPLAR [Concomitant]
  8. HYDROCHLOROTHIAZIDE [Concomitant]
  9. NIFEREX [Concomitant]
  10. PROTONIX [Concomitant]
  11. ARANESP [Concomitant]

REACTIONS (2)
  - DRUG INEFFECTIVE [None]
  - MYALGIA [None]
